FAERS Safety Report 17238127 (Version 1)
Quarter: 2020Q1

REPORT INFORMATION
  Report Type: Spontaneous
  Country: US (occurrence: US)
  Receive Date: 20200106
  Receipt Date: 20200106
  Transmission Date: 20200409
  Serious: No
  Sender: FDA-Public Use
  Company Number: US-PACIRA-201900305

PATIENT

DRUGS (5)
  1. MELOXICAM / CELECOXIB [Concomitant]
     Indication: POSTOPERATIVE ANALGESIA
     Dosage: UNKNOWN
     Route: 065
  2. OXYCODONE SR [Concomitant]
     Active Substance: OXYCODONE
     Indication: POSTOPERATIVE ANALGESIA
     Dosage: UNKOWN
     Route: 065
  3. OXYCODONE IR [Concomitant]
     Active Substance: OXYCODONE
     Indication: POSTOPERATIVE ANALGESIA
     Dosage: AS NEEDED
     Route: 065
  4. EXPAREL [Suspect]
     Active Substance: BUPIVACAINE
     Indication: JOINT ARTHROPLASTY
     Dosage: 266 MG DISSOLVED IN 20 ML NORMAL SALINE
  5. ACETAMINOPHEN. [Concomitant]
     Active Substance: ACETAMINOPHEN
     Indication: POSTOPERATIVE ANALGESIA
     Dosage: UNKNOWN
     Route: 065

REACTIONS (2)
  - Pain [Unknown]
  - Therapeutic product effect variable [Unknown]
